FAERS Safety Report 9612998 (Version 2)
Quarter: 2013Q4

REPORT INFORMATION
  Report Type: Spontaneous
  Country: US (occurrence: US)
  Receive Date: 20131010
  Receipt Date: 20131101
  Transmission Date: 20140711
  Serious: Yes (Hospitalization)
  Sender: FDA-Public Use
  Company Number: US-MERCK-1310USA001108

PATIENT
  Sex: Male

DRUGS (6)
  1. VICTRELIS [Suspect]
     Indication: HEPATITIS C
     Dosage: UNK
     Route: 048
     Dates: start: 201208, end: 201307
  2. VICTRELIS [Suspect]
     Dosage: UNK
     Route: 048
     Dates: start: 20131014
  3. REBETOL [Suspect]
     Indication: HEPATITIS C
     Dosage: UNK
     Route: 048
     Dates: start: 201208, end: 201307
  4. REBETOL [Suspect]
     Dosage: UNK
     Route: 048
     Dates: start: 20131014
  5. PEGINTRON [Suspect]
     Indication: HEPATITIS C
     Dosage: UNK
     Dates: start: 201208, end: 201307
  6. PEGINTRON [Suspect]
     Dosage: UNK
     Dates: start: 20131014

REACTIONS (5)
  - Hepatitis C [Recovered/Resolved]
  - Cryoglobulinaemia [Recovered/Resolved]
  - Pain in extremity [Recovered/Resolved]
  - Swelling [Recovered/Resolved]
  - Multimorbidity [Recovered/Resolved]
